FAERS Safety Report 26067036 (Version 2)
Quarter: 2025Q4

REPORT INFORMATION
  Report Type: Report from Study
  Country: EU (occurrence: EU)
  Receive Date: 20251119
  Receipt Date: 20251202
  Transmission Date: 20260118
  Serious: Yes (Other)
  Sender: ABBVIE
  Company Number: EU-ABBVIE-6554849

PATIENT
  Age: 74 Year
  Sex: Male

DRUGS (4)
  1. FOSCARBIDOPA\FOSLEVODOPA [Suspect]
     Active Substance: FOSCARBIDOPA\FOSLEVODOPA
     Indication: Parkinson^s disease
     Dosage: 1 VIAL, PRODUODOPA BASE RATE.?LAST ADMIN DATE: 2025?LOW RATE INCREASED FROM 0.37ML, BASE RATE INC...
     Route: 058
     Dates: start: 20250303
  2. FOSCARBIDOPA\FOSLEVODOPA [Suspect]
     Active Substance: FOSCARBIDOPA\FOSLEVODOPA
     Dosage: FIRST ADMIN DATE: 2025?LOW RATE INCREASED: 0.40ML, BASE RATE INCREASED: 0.51ML, HIGH RATE INCREAS...
     Route: 058
  3. CARBIDOPA\LEVODOPA [Concomitant]
     Active Substance: CARBIDOPA\LEVODOPA
     Indication: Product used for unknown indication
     Dosage: 2 TABLETS, FOUR TIMES A DAY, ROUTE: OTHER
  4. MIRABEGRON [Concomitant]
     Active Substance: MIRABEGRON
     Indication: Product used for unknown indication
     Dosage: ROUTE: OTHER

REACTIONS (4)
  - Facial operation [Recovering/Resolving]
  - On and off phenomenon [Not Recovered/Not Resolved]
  - Musculoskeletal stiffness [Unknown]
  - Deja vu [Unknown]

NARRATIVE: CASE EVENT DATE: 20250101
